FAERS Safety Report 7841500-1 (Version None)
Quarter: 2011Q4

REPORT INFORMATION
  Report Type: 
  Country: None (occurrence: None)
  Receive Date: 20111025
  Receipt Date: 20111018
  Transmission Date: 20120403
  Serious: Yes (Death, Other)
  Sender: FDA-Public Use
  Company Number: US-CELGENEUS-163-21880-11102089

PATIENT
  Sex: Male

DRUGS (23)
  1. SODIUM CHLORIDE INJ [Concomitant]
     Dosage: 250 MILLILITER
     Route: 041
     Dates: start: 20110501
  2. NYSTATIN [Concomitant]
     Dosage: 1 TEASPOON
     Route: 048
     Dates: start: 20110501
  3. ONDANSETRON [Concomitant]
     Route: 041
     Dates: start: 20110501
  4. PIPERACILLIN AND TAZOBACTAM [Concomitant]
     Dosage: 2.25GM/50ML
     Route: 041
     Dates: start: 20110501
  5. REVLIMID [Suspect]
     Dosage: 5 MILLIGRAM
     Route: 048
     Dates: start: 20110511, end: 20110518
  6. COMBIVENT [Concomitant]
     Indication: WHEEZING
     Dosage: 2 PUFFS
     Route: 048
     Dates: start: 20110501
  7. FUROSEMIDE [Concomitant]
     Indication: FLUID RETENTION
     Dosage: 40MG/4ML
     Route: 050
     Dates: start: 20110501
  8. SERTRALINE HYDROCHLORIDE [Concomitant]
     Dosage: 200 MILLIGRAM
     Route: 048
     Dates: start: 20110501
  9. ALTEPLASE [Concomitant]
     Dosage: 2ML IN RTU 2ML CATH + 4ML RTU 4 ML CATH@ 1
     Route: 065
     Dates: start: 20110501
  10. FENTANYL CITRATE [Concomitant]
     Indication: BREAKTHROUGH PAIN
     Dosage: 12.5MCG/0.25ML
     Route: 050
     Dates: start: 20110501
  11. OXYCODONE HCL [Concomitant]
     Indication: PAIN
     Dosage: 5 MILLIGRAM
     Route: 048
     Dates: start: 20110501
  12. PREDNISONE [Concomitant]
     Dosage: 10MG TAPER TO 20MG
     Route: 048
     Dates: start: 20110501
  13. SENSI-CARE PROTECTIVE [Concomitant]
     Route: 061
     Dates: start: 20110501
  14. PIPERACILLIN AND TAZOBACTAM [Concomitant]
     Indication: INFECTION
  15. ACETAMINOPHEN [Concomitant]
     Indication: PAIN
     Dosage: 500 MILLIGRAM
     Route: 048
     Dates: start: 20110501
  16. ACETAMINOPHEN [Concomitant]
  17. REVLIMID [Suspect]
     Indication: MYELODYSPLASTIC SYNDROME
     Dosage: 5 MILLIGRAM
     Route: 048
     Dates: start: 20110504, end: 20110507
  18. ARGATROBAN [Concomitant]
     Dosage: 250 MILLIGRAM
     Route: 041
     Dates: start: 20110501
  19. MULTI-VITAMINS [Concomitant]
     Dosage: 1 TABLET
     Route: 048
     Dates: start: 20110501
  20. OMEPRAZOLE [Concomitant]
     Dosage: 40 MILLIGRAM
     Route: 048
     Dates: start: 20110501
  21. VANCOMYCIN HCL [Concomitant]
     Dosage: 1000MG/RTU 200ML
     Route: 041
     Dates: start: 20110501
  22. VANCOMYCIN HCL [Concomitant]
     Indication: INFECTION
  23. CALCIUM ACETATE [Concomitant]
     Dosage: 1334 MILLIGRAM
     Route: 048
     Dates: start: 20110501

REACTIONS (6)
  - MYELODYSPLASTIC SYNDROME [None]
  - THROMBOCYTOPENIA [None]
  - EMBOLISM [None]
  - PYREXIA [None]
  - RENAL IMPAIRMENT [None]
  - RESPIRATORY FAILURE [None]
